FAERS Safety Report 12786745 (Version 3)
Quarter: 2020Q3

REPORT INFORMATION
  Report Type: Report from Study
  Country: AU (occurrence: AU)
  Receive Date: 20160927
  Receipt Date: 20200814
  Transmission Date: 20201102
  Serious: Yes (Life-Threatening, Other)
  Sender: FDA-Public Use
  Company Number: AU-PFIZER INC-2016442461

PATIENT
  Age: 2 Year
  Sex: Male
  Weight: 12.8 kg

DRUGS (8)
  1. DEXMEDETOMIDINE HYDROCHLORIDE. [Suspect]
     Active Substance: DEXMEDETOMIDINE HYDROCHLORIDE
     Indication: SEDATION
     Dosage: 0.6 UG/KG, PER HOUR AT TIME OF EVENT
     Route: 042
     Dates: start: 20150403, end: 20150407
  2. PROPOFOL. [Suspect]
     Active Substance: PROPOFOL
     Indication: SEDATION
     Dosage: 4 MG/KG/HR AT TIME OF EVENT
     Route: 042
     Dates: start: 20150407, end: 20150407
  3. MORPHINE SULFATE. [Suspect]
     Active Substance: MORPHINE SULFATE
     Indication: ANALGESIC THERAPY
     Dosage: 60 UG/KG, PER HOUR
     Route: 042
     Dates: start: 20150403
  4. MAGNESIUM [Concomitant]
     Active Substance: MAGNESIUM
     Indication: ELECTROLYTE SUBSTITUTION THERAPY
     Dosage: 3 MMOL, UNK
     Dates: start: 20150407, end: 20150412
  5. DOMPERIDONE [Concomitant]
     Active Substance: DOMPERIDONE
     Indication: PROPHYLAXIS
     Dosage: 4 MG, UNK
     Dates: start: 20150403, end: 20150412
  6. LACTULOSE. [Concomitant]
     Active Substance: LACTULOSE
     Indication: CONSTIPATION
     Dosage: 20 ML, UNK
     Dates: start: 20150407, end: 20150408
  7. CEFOTAXIME [Concomitant]
     Active Substance: CEFOTAXIME SODIUM
     Indication: ANTIBIOTIC THERAPY
     Dosage: 1280 MG, UNK
     Dates: start: 20150403, end: 20150407
  8. CHLORAL HYDRATE [Concomitant]
     Active Substance: CHLORAL HYDRATE
     Indication: SEDATION
     Dosage: 640 MG, UNK
     Dates: start: 20150407, end: 20150409

REACTIONS (2)
  - Bradycardia [Recovered/Resolved]
  - Oxygen saturation decreased [Recovered/Resolved]

NARRATIVE: CASE EVENT DATE: 20150407
